FAERS Safety Report 5709927-1 (Version None)
Quarter: 2008Q2

REPORT INFORMATION
  Report Type: 
  Country: None (occurrence: None)
  Receive Date: 20080418
  Receipt Date: 20071109
  Transmission Date: 20081010
  Serious: No
  Sender: FDA-Public Use
  Company Number: US-ASTRAZENECA-2007UW09282

PATIENT
  Sex: Male

DRUGS (4)
  1. TOPROL-XL [Suspect]
     Route: 048
     Dates: start: 20061101
  2. TOPROL-XL [Suspect]
     Route: 048
  3. HYDROCHLOROTHIAZIDE [Concomitant]
  4. ZANTAC [Concomitant]

REACTIONS (10)
  - ALOPECIA [None]
  - ERYTHEMA [None]
  - HYPOAESTHESIA [None]
  - MUSCLE SPASMS [None]
  - PARAESTHESIA [None]
  - PERIPHERAL COLDNESS [None]
  - PIGMENTATION DISORDER [None]
  - PRURITUS [None]
  - RASH MACULAR [None]
  - SKIN EXFOLIATION [None]
